FAERS Safety Report 11336363 (Version 2)
Quarter: 2015Q4

REPORT INFORMATION
  Report Type: Report from Study
  Country: RU (occurrence: RU)
  Receive Date: 20150804
  Receipt Date: 20151026
  Transmission Date: 20160304
  Serious: Yes (Hospitalization, Other)
  Sender: FDA-Public Use
  Company Number: RU-TEVA-581571ISR

PATIENT
  Age: 5 Year
  Sex: Female
  Weight: 17.5 kg

DRUGS (4)
  1. ETOPOZIDE [Suspect]
     Active Substance: ETOPOSIDE
     Indication: NEUROBLASTOMA
     Dosage: 78 MILLIGRAM DAILY;
     Route: 042
     Dates: start: 20150514, end: 20150517
  2. TBO-FILGRASTIM [Suspect]
     Active Substance: TBO-FILGRASTIM
     Indication: NEUTROPENIA
     Dosage: 93 MICROGRAM DAILY;
     Route: 058
     Dates: start: 20150519, end: 20150519
  3. VINBLASTINE [Suspect]
     Active Substance: VINBLASTINE
     Indication: NEUROBLASTOMA
     Dosage: 2.3 MILLIGRAM DAILY;
     Route: 042
     Dates: start: 20150514, end: 20150514
  4. CISPLATIN. [Suspect]
     Active Substance: CISPLATIN
     Indication: NEUROBLASTOMA
     Dosage: 31 MILLIGRAM DAILY;
     Route: 042
     Dates: start: 20150514, end: 20150517

REACTIONS (2)
  - Pancytopenia [Recovered/Resolved]
  - Febrile neutropenia [Recovered/Resolved]

NARRATIVE: CASE EVENT DATE: 20150530
